FAERS Safety Report 13526743 (Version 3)
Quarter: 2017Q2

REPORT INFORMATION
  Report Type: Report from Study
  Country: HN (occurrence: HN)
  Receive Date: 20170509
  Receipt Date: 20170605
  Transmission Date: 20170830
  Serious: Yes (Disabling)
  Sender: FDA-Public Use
  Company Number: PHHY2017HN067504

PATIENT
  Sex: Male
  Weight: 86.18 kg

DRUGS (1)
  1. EXFORGE HCT [Suspect]
     Active Substance: AMLODIPINE BESYLATE\HYDROCHLOROTHIAZIDE\VALSARTAN
     Indication: HYPERTENSION
     Dosage: 1 DF (AMLODIPINE 5 MG, HYDROCHLOROTHIAZIDE 25 MG, VALSARTAN 160 MG), UNK
     Route: 065

REACTIONS (3)
  - Hyperuricaemia [Unknown]
  - Deafness [Not Recovered/Not Resolved]
  - Hypoacusis [Unknown]
